FAERS Safety Report 15985671 (Version 1)
Quarter: 2019Q1

REPORT INFORMATION
  Report Type: Spontaneous
  Country: US (occurrence: US)
  Receive Date: 20190220
  Receipt Date: 20190220
  Transmission Date: 20190418
  Serious: Yes (Hospitalization, Other)
  Sender: FDA-Public Use
  Company Number: US-BAYER-2019-032197

PATIENT
  Age: 44 Year
  Sex: Male
  Weight: 100 kg

DRUGS (1)
  1. PAIN STOPPER EXTRA [Suspect]
     Active Substance: ACETAMINOPHEN\ASPIRIN\CAFFEINE\SALICYLAMIDE
     Indication: PAIN
     Dosage: UNK
     Route: 048

REACTIONS (8)
  - Toxicity to various agents [Recovering/Resolving]
  - Depression [None]
  - Confusional state [Recovered/Resolved]
  - Overdose [Recovering/Resolving]
  - Emotional distress [Not Recovered/Not Resolved]
  - Suicidal ideation [Recovered/Resolved]
  - Dyspnoea [Recovered/Resolved]
  - Oedematous kidney [Unknown]

NARRATIVE: CASE EVENT DATE: 201902
